FAERS Safety Report 20741241 (Version 1)
Quarter: 2022Q2

REPORT INFORMATION
  Report Type: Spontaneous
  Country: US (occurrence: None)
  Receive Date: 20220422
  Receipt Date: 20220422
  Transmission Date: 20220721
  Serious: Yes (Life-Threatening, Hospitalization)
  Sender: FDA-Public Use
  Company Number: None

PATIENT
  Age: 30 Month
  Sex: Male
  Weight: 14.2 kg

DRUGS (4)
  1. KYMRIAH [Suspect]
     Active Substance: TISAGENLECLEUCEL
  2. TOCILIZUMAB [Concomitant]
     Active Substance: TOCILIZUMAB
     Dates: start: 2022, end: 20220312
  3. DEXAMETHASONE [Concomitant]
     Active Substance: DEXAMETHASONE
     Dates: start: 202203, end: 20220312
  4. ANAKINRA [Concomitant]
     Active Substance: ANAKINRA
     Dates: start: 202203

REACTIONS (3)
  - Cytokine release syndrome [None]
  - Hypoxia [None]
  - Immune effector cell-associated neurotoxicity syndrome [None]

NARRATIVE: CASE EVENT DATE: 20220303
